FAERS Safety Report 5683379-2 (Version None)
Quarter: 2008Q1

REPORT INFORMATION
  Report Type: 
  Country: None (occurrence: None)
  Receive Date: 20080326
  Receipt Date: 20080311
  Transmission Date: 20080703
  Serious: Yes (Other)
  Sender: FDA-Public Use
  Company Number: 2008S1004375

PATIENT
  Age: 17 Year
  Sex: Male

DRUGS (1)
  1. SALBUTAMOL [Suspect]
     Indication: DRUG USE FOR UNKNOWN INDICATION
     Dosage: 2.5MG;  15 MH;HR

REACTIONS (5)
  - GLYCOSURIA [None]
  - HYPOTENSION [None]
  - METABOLIC ACIDOSIS [None]
  - TACHYCARDIA [None]
  - TACHYPNOEA [None]
